FAERS Safety Report 8010701-4 (Version None)
Quarter: 2011Q4

REPORT INFORMATION
  Report Type: 
  Country: None (occurrence: None)
  Receive Date: 20111228
  Receipt Date: 20111219
  Transmission Date: 20120403
  Serious: Yes (Hospitalization, Disabling)
  Sender: FDA-Public Use
  Company Number: JP-B.I. PHARMACEUTICALS,INC./RIDGEFIELD-2011-BP-26882YA

PATIENT
  Age: 84 Year
  Sex: Male
  Weight: 49.2 kg

DRUGS (11)
  1. ISOSORBIDE DINITRATE [Concomitant]
  2. ZOLPIDEM [Concomitant]
  3. AVAPRO [Concomitant]
     Dates: start: 20111127
  4. CEFAZOLIN SODIUM [Concomitant]
  5. PANCREAZE [Concomitant]
  6. CONIEL [Concomitant]
  7. TAMSULOSIN HCL [Suspect]
     Indication: BENIGN PROSTATIC HYPERPLASIA
     Dosage: 0.2 MG
     Route: 048
  8. MIRABEGRON [Suspect]
     Indication: HYPERTONIC BLADDER
     Dosage: 25 MG
     Route: 048
  9. PIOGLITAZONE HYDROCHLORIDE [Concomitant]
  10. OLMESARTAN MEDOXOMIL [Concomitant]
  11. DIART [Concomitant]

REACTIONS (2)
  - URINARY RETENTION [None]
  - RENAL FAILURE ACUTE [None]
